FAERS Safety Report 7634544-6 (Version None)
Quarter: 2011Q3

REPORT INFORMATION
  Report Type: 
  Country: None (occurrence: None)
  Receive Date: 20110725
  Receipt Date: 20110712
  Transmission Date: 20111222
  Serious: Yes (Hospitalization, Other)
  Sender: FDA-Public Use
  Company Number: US-ELI_LILLY_AND_COMPANY-US201107004895

PATIENT
  Sex: Female

DRUGS (24)
  1. FORTEO [Suspect]
     Indication: OSTEOPOROSIS
     Dosage: 20 UG, QD
     Route: 065
     Dates: start: 20100101
  2. LEVOTHYROXINE SODIUM [Concomitant]
     Dosage: UNK, QD
  3. LIOTHYRONINE SODIUM [Concomitant]
     Dosage: UNK, QD
  4. CITRACAL [Concomitant]
  5. COQ-10 [Concomitant]
     Dosage: UNK, QD
  6. OXAZEPAM [Concomitant]
     Dosage: UNK, QD
  7. CLONAZEPAM [Concomitant]
     Dosage: UNK, QD
  8. ADVAIR DISKUS 100/50 [Concomitant]
     Dosage: UNK, OTHER
  9. MUCINEX [Concomitant]
     Dosage: UNK, BID
  10. FORTEO [Suspect]
     Dosage: 20 UG, QD
     Route: 065
     Dates: start: 20110101, end: 20110301
  11. OMEPRAZOLE [Concomitant]
     Dosage: 60 MG, BID
  12. FORTEO [Suspect]
     Dosage: 20 UG, QD
     Route: 065
     Dates: start: 20110705
  13. PROZAC [Concomitant]
     Dosage: 60 MG, QD
  14. SULFASALAZINE [Concomitant]
     Dosage: 2 G, QD
  15. VYVANSE [Concomitant]
     Dosage: 70 MG, QD
  16. HYDROCORTISONE [Concomitant]
     Dosage: 35 MG, QD
  17. HYDROCODONE BITARTRATE [Concomitant]
  18. SPIRIVA [Concomitant]
     Dosage: UNK, OTHER
  19. MEDROL [Concomitant]
     Indication: SPINAL OSTEOARTHRITIS
     Dosage: UNK, OTHER
  20. FOLIC ACID [Concomitant]
     Dosage: UNK, QD
  21. REMICADE [Concomitant]
     Dosage: UNK, 4/W
  22. VITAMIN D [Concomitant]
  23. ALBUTEROL SULFATE AUTOHALER [Concomitant]
     Dosage: UNK, 2/M
  24. PRAVASTATIN [Concomitant]
     Dosage: UNK, QD

REACTIONS (9)
  - ADDISON'S DISEASE [None]
  - GAIT DISTURBANCE [None]
  - SPINAL FUSION SURGERY [None]
  - OFF LABEL USE [None]
  - INAPPROPRIATE SCHEDULE OF DRUG ADMINISTRATION [None]
  - CEREBROVASCULAR ACCIDENT [None]
  - JOINT ARTHROPLASTY [None]
  - BALANCE DISORDER [None]
  - ATRIAL SEPTAL DEFECT [None]
